FAERS Safety Report 15991614 (Version 1)
Quarter: 2019Q1

REPORT INFORMATION
  Report Type: Spontaneous
  Country: US (occurrence: US)
  Receive Date: 20190221
  Receipt Date: 20190221
  Transmission Date: 20190418
  Serious: No
  Sender: FDA-Public Use
  Company Number: US-TEVA-2019-US-1013625

PATIENT
  Sex: Female

DRUGS (1)
  1. DILTIAZEM HYDROCHLORIDE TABLETS, 30MG [Suspect]
     Active Substance: DILTIAZEM HYDROCHLORIDE

REACTIONS (2)
  - Blood pressure increased [Unknown]
  - Discomfort [Unknown]
